FAERS Safety Report 6620706-3 (Version None)
Quarter: 2010Q1

REPORT INFORMATION
  Report Type: 
  Country: None (occurrence: None)
  Receive Date: 20100309
  Receipt Date: 20100224
  Transmission Date: 20100710
  Serious: Yes (Other)
  Sender: FDA-Public Use
  Company Number: US-BAYER-200943168NA

PATIENT
  Age: 24 Year
  Sex: Female
  Weight: 80 kg

DRUGS (1)
  1. MIRENA [Suspect]
     Indication: CONTRACEPTION
     Route: 015
     Dates: start: 20061101, end: 20091130

REACTIONS (3)
  - ABORTION MISSED [None]
  - BLIGHTED OVUM [None]
  - PREGNANCY WITH CONTRACEPTIVE DEVICE [None]
